FAERS Safety Report 16329841 (Version 2)
Quarter: 2021Q4

REPORT INFORMATION
  Report Type: Spontaneous
  Country: ES (occurrence: ES)
  Receive Date: 20190520
  Receipt Date: 20211012
  Transmission Date: 20220304
  Serious: Yes (Hospitalization, Other)
  Sender: FDA-Public Use
  Company Number: ES-AEMPS-486249

PATIENT
  Age: 83 Year
  Sex: Female

DRUGS (4)
  1. ESCITALOPRAM [Interacting]
     Active Substance: ESCITALOPRAM OXALATE
     Indication: Product used for unknown indication
     Dosage: 10 MILLIGRAM, ONCE A DAY
     Route: 048
     Dates: start: 20150427
  2. TORSEMIDE [Interacting]
     Active Substance: TORSEMIDE
     Indication: Oedema peripheral
     Dosage: 5 MILLIGRAM, ONCE A DAY
     Route: 048
     Dates: start: 20131107, end: 20190107
  3. TORSEMIDE [Interacting]
     Active Substance: TORSEMIDE
     Dosage: 10 MILLIGRAM, ONCE A DAY (10 MG DIA)
     Route: 048
     Dates: start: 20190108, end: 20190113
  4. ALDACTONE [Interacting]
     Active Substance: SPIRONOLACTONE
     Indication: Aortic stenosis
     Dosage: 25 MILLIGRAM, ONCE A DAY (1-0-0)
     Route: 048
     Dates: start: 20180101

REACTIONS (1)
  - Inappropriate antidiuretic hormone secretion [Recovering/Resolving]

NARRATIVE: CASE EVENT DATE: 20190113
